FAERS Safety Report 23543461 (Version 1)
Quarter: 2024Q1

REPORT INFORMATION
  Report Type: Spontaneous
  Country: ES (occurrence: ES)
  Receive Date: 20240220
  Receipt Date: 20240220
  Transmission Date: 20240410
  Serious: Yes (Hospitalization)
  Sender: FDA-Public Use
  Company Number: None

PATIENT
  Age: 79 Year
  Sex: Male

DRUGS (10)
  1. METFORMIN [Suspect]
     Active Substance: METFORMIN HYDROCHLORIDE
     Indication: Diabetes mellitus
     Dosage: 850.0 MG C/12 H
     Route: 048
     Dates: start: 20230815, end: 20230923
  2. WYNZORA [Concomitant]
     Active Substance: BETAMETHASONE DIPROPIONATE\CALCIPOTRIENE
     Indication: Psoriasis
     Dosage: 50 MCG /G + 0.5 MG / G CREAM, 1 TUBE OF 60 G?1.0 APLIC C/24 H
     Route: 061
     Dates: start: 20230616
  3. OMEPRAZOLE [Concomitant]
     Active Substance: OMEPRAZOLE
     Indication: Arrhythmia
     Dosage: 56 CAPSULES (VIAL), ?20.0 MG A-DE
     Route: 048
     Dates: start: 20230914
  4. ALOPURINOL CINFA [Concomitant]
     Indication: Gout
     Dosage: 300.0 MG DE, 30 TABLETS
     Route: 048
     Dates: start: 20191205
  5. SINTROM [Concomitant]
     Active Substance: ACENOCOUMAROL
     Indication: Atrial fibrillation
     Dosage: 4.0 MG CE, 20 TABLETS
     Route: 048
     Dates: start: 20200519
  6. LISINOPRIL CINFA [LISINOPRIL] [Concomitant]
     Indication: Essential hypertension
     Dosage: EFG TABLETS, 28 TABLETS?20.0 MG DE
     Route: 048
     Dates: start: 20230614
  7. GREGAL [Concomitant]
     Indication: Bronchitis chronic
     Dosage: GREGAL 10 UG/DOSE RELEASED POWDER FOR INHALATION HARD CAPSULE 30 CAPSULES+1 INHALATOR?18.0 MCG C/24H
     Route: 050
     Dates: start: 20190226
  8. ATORVASTATIN CALCIUM [Concomitant]
     Active Substance: ATORVASTATIN CALCIUM
     Indication: Hyperlipidaemia
     Dosage: ATORVASTATINA CINFA 20 MG FILM COATED TABLETS, GENERICS, 28 TABLETS?20.0 MG CE
     Route: 048
     Dates: start: 20160210
  9. HYDROCHLOROTHIAZIDE [Concomitant]
     Active Substance: HYDROCHLOROTHIAZIDE
     Indication: Hypertension
     Dosage: HIDROSALURETIL 50 MG EFG TABLETS 20 TABLETS?50.0 MG DE
     Route: 048
     Dates: start: 20230614
  10. AMLODIPINE [Concomitant]
     Active Substance: AMLODIPINE BESYLATE
     Indication: Essential hypertension
     Dosage: AMLODIPINO CINFA 5 MG EFG TABLETS, 30 TABLETS?5.0 MG CE
     Route: 048
     Dates: start: 20230705

REACTIONS (1)
  - Abdominal pain [Recovered/Resolved]

NARRATIVE: CASE EVENT DATE: 20230923
